FAERS Safety Report 9675619 (Version 1)
Quarter: 2013Q4

REPORT INFORMATION
  Report Type: Spontaneous
  Country: US (occurrence: None)
  Receive Date: 20131105
  Receipt Date: 20131105
  Transmission Date: 20140711
  Serious: Yes (Other)
  Sender: FDA-Public Use
  Company Number: JPI-P-034235

PATIENT
  Age: 31 Year
  Sex: 0

DRUGS (14)
  1. XYREM (SODIUM OXYBATE) ORAL SOLUTION, 500MG/ML [Suspect]
     Indication: NARCOLEPSY
     Route: 048
     Dates: start: 201208, end: 2012
  2. XYREM (SODIUM OXYBATE) ORAL SOLUTION, 500MG/ML [Suspect]
     Indication: CATAPLEXY
     Route: 048
     Dates: start: 201208, end: 2012
  3. KEPPRA [Suspect]
     Indication: PRODUCT USED FOR UNKNOWN INDICATION
     Dosage: SINGLE
  4. IBUPROFEN (IBUPROFEN) [Concomitant]
  5. VALACYCLOVIR HCL PHARMA PAC (VALACICLOVIR HYDROCHLORIDE) [Concomitant]
  6. LAMOTRIGINE (LAMOTRIGINE) [Concomitant]
  7. NAPROXEN SODIUM (NAPROXEN SODIUM) [Concomitant]
  8. ALBUTEROL (SALBUTAMOL SULFATE) [Concomitant]
  9. FAMOTIDINE (FAMOTIDINE) [Concomitant]
  10. TRIAMCINOLONE (TRIAMCINOLONE ACETONIDE) [Concomitant]
  11. LORATIDINE [Concomitant]
  12. HYDROCORTISONE (HYDROCORTISONE) [Concomitant]
  13. CITALOPRAM [Concomitant]
  14. ZOVIRAX (ACICLOVIR SODIUM) [Concomitant]

REACTIONS (3)
  - Epilepsy [None]
  - Performance status decreased [None]
  - Somnolence [None]
